FAERS Safety Report 8849021 (Version 1)
Quarter: 2012Q4

REPORT INFORMATION
  Report Type: 
  Country: AU (occurrence: AU)
  Receive Date: 20121019
  Receipt Date: 20121019
  Transmission Date: 20130627
  Serious: Yes (Other)
  Sender: FDA-Public Use
  Company Number: AU-AMGEN-AUSSP2012066222

PATIENT
  Age: 87 Year
  Sex: Female

DRUGS (12)
  1. PROLIA [Suspect]
     Indication: OSTEOPOROSIS
     Dosage: UNK
     Dates: start: 20100915
  2. ACTILAX                            /00163401/ [Concomitant]
     Dosage: UNK
     Dates: end: 20120905
  3. ATACAND [Concomitant]
     Indication: HYPERTENSION
  4. CAL-SUP [Concomitant]
  5. CARDIZEM                           /00489701/ [Concomitant]
     Indication: HYPERTENSION
  6. CYANOCOBALAMIN [Concomitant]
  7. GLUCOSAMINE [Concomitant]
     Indication: OSTEOARTHRITIS
  8. NORMISON                           /00393701/ [Concomitant]
  9. NULAX                              /00163401/ [Concomitant]
     Dosage: UNK
     Dates: end: 20120805
  10. OSTELIN                            /00107901/ [Concomitant]
  11. SYMBICORT [Concomitant]
     Indication: BRONCHIECTASIS
  12. MODURETIC [Concomitant]
     Indication: HYPERTENSION

REACTIONS (5)
  - Aortic aneurysm [Not Recovered/Not Resolved]
  - Neuropathy peripheral [Not Recovered/Not Resolved]
  - Muscle spasms [Not Recovered/Not Resolved]
  - Skin discolouration [Not Recovered/Not Resolved]
  - Constipation [Recovered/Resolved]
